FAERS Safety Report 12949595 (Version 1)
Quarter: 2016Q4

REPORT INFORMATION
  Report Type: Spontaneous
  Country: US (occurrence: US)
  Receive Date: 20161116
  Receipt Date: 20161116
  Transmission Date: 20170207
  Serious: Yes (Life-Threatening, Hospitalization)
  Sender: FDA-Public Use
  Company Number: None

PATIENT
  Age: 58 Year
  Sex: Female
  Weight: 62.2 kg

DRUGS (7)
  1. ATORVASTATIN [Concomitant]
     Active Substance: ATORVASTATIN
  2. DILTIAZEM. [Concomitant]
     Active Substance: DILTIAZEM
  3. POTASIUM CHLORIDE [Concomitant]
  4. ENOXAPARIN [Concomitant]
     Active Substance: ENOXAPARIN
  5. DOFETILIDE. [Suspect]
     Active Substance: DOFETILIDE
     Indication: ATRIAL FIBRILLATION
     Route: 048
     Dates: start: 20161020, end: 20161022
  6. BISOPROLOL [Concomitant]
     Active Substance: BISOPROLOL
  7. LORATADINE. [Concomitant]
     Active Substance: LORATADINE

REACTIONS (3)
  - Cardiac arrest [None]
  - Torsade de pointes [None]
  - Arrhythmia [None]

NARRATIVE: CASE EVENT DATE: 20161022
